FAERS Safety Report 9486434 (Version 1)
Quarter: 2013Q3

REPORT INFORMATION
  Report Type: Spontaneous
  Country: US (occurrence: None)
  Receive Date: 20130827
  Receipt Date: 20130827
  Transmission Date: 20140515
  Serious: Yes (Life-Threatening, Hospitalization, Disabling)
  Sender: FDA-Public Use
  Company Number: None

PATIENT
  Age: 8 Month
  Sex: Female
  Weight: 7.26 kg

DRUGS (1)
  1. HYLAND TEETHING TABLETA HYLAND [Suspect]
     Indication: TEETHING
     Dates: start: 20130301, end: 20130701

REACTIONS (2)
  - Convulsion [None]
  - Product quality issue [None]
